FAERS Safety Report 11230200 (Version 2)
Quarter: 2015Q3

REPORT INFORMATION
  Report Type: Not Available
  Country: IE (occurrence: IE)
  Receive Date: 20150701
  Receipt Date: 20150721
  Transmission Date: 20151125
  Serious: Yes (Hospitalization, Other)
  Sender: FDA-Public Use
  Company Number: IE-BEH-2015049000

PATIENT
  Age: 31 Year
  Sex: Female
  Weight: 92.5 kg

DRUGS (4)
  1. RHOPHYLAC [Suspect]
     Active Substance: HUMAN RHO(D) IMMUNE GLOBULIN
     Indication: PROPHYLAXIS AGAINST RH ISOIMMUNISATION
     Dosage: DAILY DOSE: STAT DOSE (1500 IU), GESTATION WEEK 30TH
     Route: 030
     Dates: start: 20150128, end: 20150128
  2. VENTOLIN INHALERS/EVOHALER [Concomitant]
     Route: 055
  3. BECOTIDE INHALERS/EVOHALER [Concomitant]
     Route: 055
  4. RHOPHYLAC [Suspect]
     Active Substance: HUMAN RHO(D) IMMUNE GLOBULIN
     Indication: RHESUS ANTIBODIES NEGATIVE
     Dosage: DAILY DOSE: STAT DOSE (1500 IU), GESTATION WEEK 30TH
     Route: 030
     Dates: start: 20150128, end: 20150128

REACTIONS (5)
  - Tachycardia [Recovered/Resolved]
  - Chest discomfort [Recovered/Resolved]
  - Asthenia [Recovered/Resolved]
  - Dizziness [Recovered/Resolved]
  - Palpitations [Recovered/Resolved]

NARRATIVE: CASE EVENT DATE: 20150128
